FAERS Safety Report 5367564-5 (Version None)
Quarter: 2007Q2

REPORT INFORMATION
  Report Type: 
  Country: None (occurrence: None)
  Receive Date: 20070622
  Receipt Date: 20061207
  Transmission Date: 20071010
  Serious: No
  Sender: FDA-Public Use
  Company Number: US-ASTRAZENECA-2006UW27249

PATIENT
  Age: 77 Year
  Sex: Female
  Weight: 43.5 kg

DRUGS (5)
  1. PULMICORT RESPULES [Suspect]
     Indication: CHRONIC OBSTRUCTIVE PULMONARY DISEASE
     Route: 055
  2. RISPERDAL [Concomitant]
  3. ZOLOFT [Concomitant]
  4. BACLOFEN [Concomitant]
  5. ADVAIR DISKUS 100/50 [Concomitant]

REACTIONS (1)
  - BREATH SOUNDS ABNORMAL [None]
